FAERS Safety Report 7993625-8 (Version None)
Quarter: 2011Q4

REPORT INFORMATION
  Report Type: 
  Country: None (occurrence: None)
  Receive Date: 20111219
  Receipt Date: 20111214
  Transmission Date: 20120403
  Serious: Yes (Hospitalization)
  Sender: FDA-Public Use
  Company Number: US-GILEAD-2011-0048162

PATIENT
  Sex: Male

DRUGS (2)
  1. FLOLAN [Concomitant]
  2. LETAIRIS [Suspect]
     Indication: PRODUCT USED FOR UNKNOWN INDICATION
     Dosage: 5 MG, UNK
     Route: 048
     Dates: start: 20090112, end: 20111116

REACTIONS (2)
  - LEFT VENTRICULAR DYSFUNCTION [None]
  - CHEST DISCOMFORT [None]
